FAERS Safety Report 6282345-6 (Version None)
Quarter: 2009Q3

REPORT INFORMATION
  Report Type: 
  Country: None (occurrence: None)
  Receive Date: 20090721
  Receipt Date: 20090721
  Transmission Date: 20100115
  Serious: No
  Sender: FDA-Public Use
  Company Number: None

PATIENT
  Age: 57 Year
  Sex: Male
  Weight: 63.5036 kg

DRUGS (5)
  1. OXYBUTYNIN CHLORIDE ER 10MG 10MG OSMOTICA PHRMACEUTICALS [Suspect]
     Indication: PROSTATE CANCER
     Dosage: 10MG 3 TIMES PER DAY PO
     Route: 048
     Dates: start: 20060208, end: 20090720
  2. CARISOPRODOL [Concomitant]
  3. LUNESTA [Concomitant]
  4. METHADONE HCL [Concomitant]
  5. ENDOCET [Concomitant]

REACTIONS (3)
  - DRUG EFFECT DECREASED [None]
  - NOCTURIA [None]
  - PRODUCT SUBSTITUTION ISSUE [None]
